FAERS Safety Report 5272422-0 (Version None)
Quarter: 2007Q1

REPORT INFORMATION
  Report Type: 
  Country: None (occurrence: None)
  Receive Date: 20070320
  Receipt Date: 20070320
  Transmission Date: 20070707
  Serious: Yes (Death, Other)
  Sender: FDA-Public Use
  Company Number: None

PATIENT
  Age: 76 Year
  Sex: Female
  Weight: 59.8748 kg

DRUGS (7)
  1. FENTANYL [Suspect]
     Indication: PAIN
     Dosage: 25MG UP TO 75MG 1 1/2 WEEKS PATCH
     Route: 062
  2. FENTANYL [Suspect]
     Indication: POSTNASAL DRIP
     Dosage: 25MG UP TO 75MG 1 1/2 WEEKS PATCH
     Route: 062
  3. FENTANYL [Suspect]
     Indication: VOMITING
     Dosage: 25MG UP TO 75MG 1 1/2 WEEKS PATCH
     Route: 062
  4. FENTENAYL [Concomitant]
  5. PHENAETHEGAN [Concomitant]
  6. MORPHINE [Concomitant]
  7. SCOPLAMINE [Concomitant]

REACTIONS (6)
  - CONTRAINDICATION TO MEDICAL TREATMENT [None]
  - EUTHANASIA [None]
  - HYPERSENSITIVITY [None]
  - HYPERVENTILATION [None]
  - INTENTIONAL DRUG MISUSE [None]
  - MEDICATION ERROR [None]
